FAERS Safety Report 20689593 (Version 3)
Quarter: 2023Q2

REPORT INFORMATION
  Report Type: Spontaneous
  Country: US (occurrence: US)
  Receive Date: 20220408
  Receipt Date: 20230426
  Transmission Date: 20230721
  Serious: No
  Sender: FDA-Public Use
  Company Number: US-SA-SAC20220407001748

PATIENT
  Age: 8 Year
  Sex: Female

DRUGS (2)
  1. DUPIXENT [Suspect]
     Active Substance: DUPILUMAB
     Indication: Dermatitis atopic
     Dosage: 300 MG, Q4W
     Route: 058
     Dates: start: 202201
  2. DUPIXENT [Suspect]
     Active Substance: DUPILUMAB
     Dosage: 300 MG, Q4W
     Route: 058
     Dates: start: 202203

REACTIONS (5)
  - Pruritus [Recovered/Resolved]
  - Injection site inflammation [Unknown]
  - Injection site swelling [Unknown]
  - Injection site erythema [Unknown]
  - Product use issue [Unknown]

NARRATIVE: CASE EVENT DATE: 20220101
